FAERS Safety Report 7562940-4 (Version None)
Quarter: 2011Q2

REPORT INFORMATION
  Report Type: 
  Country: None (occurrence: None)
  Receive Date: 20110622
  Receipt Date: 20110611
  Transmission Date: 20111010
  Serious: Yes (Hospitalization)
  Sender: FDA-Public Use
  Company Number: US-ROCHE-784265

PATIENT
  Age: 72 Year
  Sex: Female
  Weight: 60 kg

DRUGS (6)
  1. TOPROL-XL [Suspect]
     Route: 065
  2. BEVACIZUMAB [Suspect]
     Dosage: TOTAL DOSE: 1000 MG, OVER 30-90 MIN
     Route: 042
     Dates: start: 20110128
  3. PACLITAXEL [Suspect]
     Dosage: TOTAL DOSE: 141 MG, OVER 1 HR ON DAY 1,8 AND 15
     Route: 042
     Dates: start: 20110128
  4. CARBOPLATIN [Suspect]
     Dosage: AUC: 6, DID NOT RECEIVE CYCLE 4
     Route: 042
     Dates: start: 20110128
  5. DIGOXIN [Suspect]
     Route: 065
  6. ASPIRIN [Concomitant]

REACTIONS (8)
  - PERIPHERAL MOTOR NEUROPATHY [None]
  - DEHYDRATION [None]
  - FATIGUE [None]
  - PERIPHERAL SENSORY NEUROPATHY [None]
  - PNEUMONIA [None]
  - HAEMOGLOBIN [None]
  - MUSCULAR WEAKNESS [None]
  - ATRIAL FIBRILLATION [None]
